FAERS Safety Report 9460259 (Version 1)
Quarter: 2013Q3

REPORT INFORMATION
  Report Type: Spontaneous
  Country: IT (occurrence: IT)
  Receive Date: 20130815
  Receipt Date: 20130815
  Transmission Date: 20140515
  Serious: Yes (Other)
  Sender: FDA-Public Use
  Company Number: IT-TEVA-423642ISR

PATIENT
  Age: 62 Year
  Sex: Female
  Weight: 95 kg

DRUGS (2)
  1. METHOTREXATE [Suspect]
     Indication: PSORIATIC ARTHROPATHY
     Dosage: 10 MILLIGRAM DAILY;
     Route: 030
     Dates: start: 20120611, end: 20130607
  2. ADALIMUMAB [Suspect]
     Indication: PSORIATIC ARTHROPATHY
     Dosage: 40 MILLIGRAM DAILY;
     Route: 058
     Dates: start: 20120611, end: 20130607

REACTIONS (1)
  - Tongue neoplasm malignant stage unspecified [Recovered/Resolved]
